FAERS Safety Report 12288867 (Version 1)
Quarter: 2016Q2

REPORT INFORMATION
  Report Type: Spontaneous
  Country: US (occurrence: US)
  Receive Date: 20160421
  Receipt Date: 20160421
  Transmission Date: 20160815
  Serious: No
  Sender: FDA-Public Use
  Company Number: US-JNJFOC-20160401856

PATIENT
  Age: 62 Year
  Sex: Female
  Weight: 58.97 kg

DRUGS (2)
  1. NIZORAL A-D [Suspect]
     Active Substance: KETOCONAZOLE
     Indication: RASH
     Dosage: ABOUT A QUARTER SIZE OR MORE, 3-4 DAYS A WEEK FOR A COUPLE OF YEARS.
     Route: 061
  2. NIZORAL A-D [Suspect]
     Active Substance: KETOCONAZOLE
     Indication: PRURITUS
     Dosage: ABOUT A QUARTER SIZE OR MORE, 3-4 DAYS A WEEK FOR A COUPLE OF YEARS.
     Route: 061

REACTIONS (3)
  - Off label use [Unknown]
  - Therapeutic response unexpected [Unknown]
  - Product use issue [Unknown]
